FAERS Safety Report 23365407 (Version 2)
Quarter: 2024Q4

REPORT INFORMATION
  Report Type: Spontaneous
  Country: DE (occurrence: DE)
  Receive Date: 20240104
  Receipt Date: 20241212
  Transmission Date: 20250114
  Serious: Yes (Hospitalization, Other)
  Sender: MERCK
  Company Number: None

PATIENT
  Age: 51 Year
  Sex: Male
  Weight: 86 kg

DRUGS (8)
  1. DAPTOMYCIN [Suspect]
     Active Substance: DAPTOMYCIN
     Indication: Streptococcal endocarditis
     Dosage: 350 MILLIGRAM, QD (ALSO REPORTED AS 1-0-0)
     Route: 042
     Dates: start: 20230701, end: 20230712
  2. DAPTOMYCIN [Suspect]
     Active Substance: DAPTOMYCIN
     Indication: Streptococcal endocarditis
     Dosage: 500 MILLIGRAM, QD (ALSO REPORTED AS 1-0-0)
     Route: 042
     Dates: start: 20230701, end: 20230712
  3. ROSUVASTATIN [Suspect]
     Active Substance: ROSUVASTATIN
     Indication: Coronary artery disease
     Dosage: 40 MG, QD; 0-0-1-0 DURATION OF APPLICATION UNCLEAR, NOW PAUSING
     Route: 048
  4. GENTAMICIN [Suspect]
     Active Substance: GENTAMICIN
     Indication: Streptococcal endocarditis
     Dosage: UNK
     Dates: start: 20230701, end: 20230712
  5. NEBIVOLOL [Concomitant]
     Active Substance: NEBIVOLOL
     Dosage: 5 MILLIGRAM, QD (ALSO REPORTED AS 1-0-0-0)
  6. ASPIRIN [Concomitant]
     Active Substance: ASPIRIN
     Dosage: 100 MILLIGRAM, QD (ALSO REPORTED AS 1-0-0-0)
  7. EZETIMIBE [Concomitant]
     Active Substance: EZETIMIBE
     Dosage: 10 MILLIGRAM, QD (ALSO REPORTED AS 0-0-1-0)
  8. FERRO-SANOL DUODENAL [Concomitant]
     Active Substance: FERROUS GLYCINE SULFATE
     Dosage: 100 MILLIGRAM, EVERY 0.5 DAY (ALSO REPORTED AS 1-0-1)

REACTIONS (3)
  - Burning sensation [Recovering/Resolving]
  - Rhabdomyolysis [Recovering/Resolving]
  - Myositis [Recovering/Resolving]

NARRATIVE: CASE EVENT DATE: 20230701
